FAERS Safety Report 7535602-7 (Version None)
Quarter: 2011Q2

REPORT INFORMATION
  Report Type: 
  Country: None (occurrence: None)
  Receive Date: 20110602
  Receipt Date: 20101209
  Transmission Date: 20111010
  Serious: No
  Sender: FDA-Public Use
  Company Number: EUS-2010-00251

PATIENT
  Age: 30 Year
  Sex: Female
  Weight: 52 kg

DRUGS (3)
  1. QUADRAMET [Suspect]
     Dosage: 1.2 MCI/KG, INTRAVENOUS
     Route: 042
     Dates: start: 20051216, end: 20051216
  2. 18F-FDG (FLUDEOXYGLUCOSE (18F)) [Concomitant]
  3. CONTRAST MEDIA (CONTRAST MEDIA) [Concomitant]

REACTIONS (4)
  - PLEURAL EFFUSION [None]
  - DYSPNOEA [None]
  - DISEASE PROGRESSION [None]
  - PANCYTOPENIA [None]
